FAERS Safety Report 13336605 (Version 1)
Quarter: 2017Q1

REPORT INFORMATION
  Report Type: Spontaneous
  Country: US (occurrence: US)
  Receive Date: 20170314
  Receipt Date: 20170314
  Transmission Date: 20170428
  Serious: No
  Sender: FDA-Public Use
  Company Number: US-JAZZ-2017-US-000520

PATIENT
  Sex: Female

DRUGS (53)
  1. XYREM [Suspect]
     Active Substance: SODIUM OXYBATE
     Dosage: 4.5G, BID
     Route: 048
     Dates: start: 2016
  2. ALPRAZOLAM. [Concomitant]
     Active Substance: ALPRAZOLAM
  3. FISH OIL [Concomitant]
     Active Substance: FISH OIL
  4. NASACORT ALLERGY 24HR [Concomitant]
     Active Substance: TRIAMCINOLONE ACETONIDE
  5. SOMA [Concomitant]
     Active Substance: CARISOPRODOL
  6. VITAMIN B COMPLEX [Concomitant]
     Active Substance: CYANOCOBALAMIN\DEXPANTHENOL\NIACINAMIDE\PYRIDOXINE HYDROCHLORIDE\RIBOFLAVIN 5^-PHOSPHATE SODIUM\THIAMINE HYDROCHLORIDE\VITAMIN B COMPLEX
  7. GREEN TEA                          /01578101/ [Concomitant]
     Active Substance: GREEN TEA LEAF
  8. KELP                               /00082201/ [Concomitant]
     Active Substance: IODINE
  9. DIGESTIVE ENZYMES                  /02161301/ [Concomitant]
  10. GREEN COFFEE BEAN [Concomitant]
  11. IBUPROFEN. [Concomitant]
     Active Substance: IBUPROFEN
  12. NORCO [Concomitant]
     Active Substance: ACETAMINOPHEN\HYDROCODONE BITARTRATE
  13. SIMETHICONE (DIMETHICONE) [Concomitant]
     Active Substance: DIMETHICONE
  14. CALCIUM CITRATE + D [Concomitant]
  15. REQUIP [Concomitant]
     Active Substance: ROPINIROLE HYDROCHLORIDE
  16. CURCUMIN [Concomitant]
     Active Substance: CURCUMIN
  17. MACROBID [Concomitant]
     Active Substance: NITROFURANTOIN\NITROFURANTOIN MONOHYDRATE
  18. VITAMIN C [Concomitant]
     Active Substance: ASCORBIC ACID
  19. VITAMIN D3 [Concomitant]
     Active Substance: CHOLECALCIFEROL
  20. MAGNESIUM OXIDE HEAVY [Concomitant]
     Active Substance: MAGNESIUM OXIDE
  21. VALTREX [Concomitant]
     Active Substance: VALACYCLOVIR HYDROCHLORIDE
  22. XYREM [Suspect]
     Active Substance: SODIUM OXYBATE
     Indication: NARCOLEPSY
     Dosage: 2.25G, BID
     Route: 048
     Dates: start: 201511, end: 2015
  23. SUDAFED PE CONGESTION [Concomitant]
     Active Substance: PHENYLEPHRINE HYDROCHLORIDE
  24. BENADRYL ALLERGY [Concomitant]
     Active Substance: DIPHENHYDRAMINE HYDROCHLORIDE
  25. CHLORELLA                          /01723301/ [Concomitant]
  26. PATANASE [Concomitant]
     Active Substance: OLOPATADINE HYDROCHLORIDE
  27. ALLEGRA ALLERGY [Concomitant]
     Active Substance: FEXOFENADINE HYDROCHLORIDE
  28. KONJAC MEHL [Concomitant]
  29. ADDERALL [Concomitant]
     Active Substance: AMPHETAMINE ASPARTATE\AMPHETAMINE SULFATE\DEXTROAMPHETAMINE SACCHARATE\DEXTROAMPHETAMINE SULFATE
  30. BIOTIN [Concomitant]
     Active Substance: BIOTIN
  31. CHROMIUM PICOLINAT [Concomitant]
  32. FOLIC ACID. [Concomitant]
     Active Substance: FOLIC ACID
  33. GLUCOSAMINE [Concomitant]
     Active Substance: GLUCOSAMINE
  34. L-ARGININE                         /00126101/ [Concomitant]
     Active Substance: ARGININE
  35. AMBIEN [Concomitant]
     Active Substance: ZOLPIDEM TARTRATE
  36. PREMPRO [Concomitant]
     Active Substance: ESTROGENS, CONJUGATED\MEDROXYPROGESTERONE ACETATE
  37. ZINC GLUCONATE [Concomitant]
     Active Substance: ZINC GLUCONATE
  38. COLLAGEN HYDROLYSATE [Concomitant]
  39. PROBIOTIC COMPLEX [Concomitant]
  40. XYREM [Suspect]
     Active Substance: SODIUM OXYBATE
     Dosage: DOSE ADJUSTMENT
     Route: 048
     Dates: start: 2015, end: 2016
  41. ZYRTEC [Concomitant]
     Active Substance: CETIRIZINE HYDROCHLORIDE
  42. CALCIUM ANTACID [Concomitant]
     Active Substance: CALCIUM CARBONATE
  43. GUAIFENESIN. [Concomitant]
     Active Substance: GUAIFENESIN
  44. PYRIDOXINE [Concomitant]
     Active Substance: PYRIDOXINE
  45. STRATTERA [Concomitant]
     Active Substance: ATOMOXETINE HYDROCHLORIDE
  46. PREVACID [Concomitant]
     Active Substance: LANSOPRAZOLE
  47. ALBUTEROL SULFATE. [Concomitant]
     Active Substance: ALBUTEROL SULFATE
  48. YEAST                              /05458001/ [Concomitant]
  49. LOSARTAN POTASSIUM. [Concomitant]
     Active Substance: LOSARTAN POTASSIUM
  50. TIZANIDINE HCL [Concomitant]
     Active Substance: TIZANIDINE HYDROCHLORIDE
  51. ALLERGY                            /00000402/ [Concomitant]
  52. EPIPEN [Concomitant]
     Active Substance: EPINEPHRINE
  53. VITAMIN B12 [Concomitant]
     Active Substance: CYANOCOBALAMIN

REACTIONS (2)
  - Blood pressure decreased [Unknown]
  - Drug ineffective [Unknown]
